FAERS Safety Report 10166370 (Version 2)
Quarter: 2014Q2

REPORT INFORMATION
  Report Type: Spontaneous
  Country: US (occurrence: US)
  Receive Date: 20140512
  Receipt Date: 20140527
  Transmission Date: 20141212
  Serious: Yes (Hospitalization, Disabling)
  Sender: FDA-Public Use
  Company Number: US-UCBSA-120047

PATIENT
  Sex: Female
  Weight: 45.45 kg

DRUGS (20)
  1. KEPPRA [Suspect]
     Indication: POST-TRAUMATIC EPILEPSY
     Dosage: DOSE UNKNOWN
  2. KEPPRA [Suspect]
     Indication: CONVULSION
     Dosage: DOSE UNKNOWN
  3. LIPITOR [Concomitant]
  4. COZAAR [Concomitant]
     Indication: HYPERTENSION
  5. POTASSIUM [Concomitant]
     Dosage: FREQUENCY: DAILY
  6. CO-ENZYME 10 [Concomitant]
  7. ATIVAN [Concomitant]
     Indication: CONVULSION
     Dosage: AS NEEDED
  8. ALEVE [Concomitant]
     Indication: HEADACHE
  9. VALIUM [Concomitant]
     Indication: CONVULSION
  10. VITAMIN D [Concomitant]
  11. CALCITRIOL [Concomitant]
  12. CALCIUM [Concomitant]
     Dosage: DAILY
  13. VITAMIN B12 [Concomitant]
     Indication: VITAMIN B12 DEFICIENCY
  14. LORAZEPAM [Concomitant]
     Indication: OLFACTORY NERVE DISORDER
  15. VITAMIN C [Concomitant]
  16. LYSINE [Concomitant]
  17. MELATONIN [Concomitant]
     Indication: INSOMNIA
  18. MAGNESIUM [Concomitant]
  19. ZONEGRAN [Concomitant]
     Indication: CONVULSION
  20. PHENOBARBITAL [Concomitant]
     Indication: CONVULSION

REACTIONS (5)
  - Limb injury [Recovered/Resolved]
  - Nerve injury [Recovered/Resolved]
  - Walking disability [Recovered/Resolved]
  - Ear injury [Recovered/Resolved]
  - Weight increased [Recovered/Resolved]
